FAERS Safety Report 24997467 (Version 6)
Quarter: 2025Q3

REPORT INFORMATION
  Report Type: Report from Study
  Country: CA (occurrence: CA)
  Receive Date: 20250222
  Receipt Date: 20250904
  Transmission Date: 20251020
  Serious: Yes (Other)
  Sender: CELLTRION
  Company Number: CA-CELLTRION INC.-2025CA004938

PATIENT

DRUGS (4)
  1. USTEKINUMAB [Suspect]
     Active Substance: USTEKINUMAB
     Indication: Crohn^s disease
     Dosage: 90 MILLIGRAM, EVERY 4 WEEKS
     Route: 058
     Dates: start: 20250115, end: 2025
  2. USTEKINUMAB [Suspect]
     Active Substance: USTEKINUMAB
     Dosage: 90 MG, EVERY 4 WEEKS / MARCH 15TH HAD HER 3RD INJECTION
     Route: 058
  3. USTEKINUMAB [Suspect]
     Active Substance: USTEKINUMAB
     Dosage: 90 MG, EVERY 4 WEEKS
     Route: 058
     Dates: start: 20250409
  4. USTEKINUMAB [Suspect]
     Active Substance: USTEKINUMAB
     Dosage: 90 MG, EVERY 4 WEEKS
     Route: 058
     Dates: start: 20250415

REACTIONS (6)
  - Uveitis [Unknown]
  - Cataract [Recovering/Resolving]
  - Eye swelling [Unknown]
  - Eye discharge [Unknown]
  - Eye contusion [Unknown]
  - Intentional product use issue [Recovering/Resolving]
